FAERS Safety Report 4628350-4 (Version None)
Quarter: 2005Q2

REPORT INFORMATION
  Report Type: 
  Country: None (occurrence: None)
  Receive Date: 20050401
  Receipt Date: 20050322
  Transmission Date: 20051028
  Serious: Yes (Hospitalization)
  Sender: FDA-Public Use
  Company Number: 2005049299

PATIENT
  Age: 38 Year
  Sex: Female

DRUGS (3)
  1. SUDAFED 12 HOUR [Suspect]
     Indication: NASOPHARYNGITIS
     Dosage: RECOMMENDED DOSE EVERY 4-6
     Dates: start: 20050301, end: 20050301
  2. ACETAMINOPHEN [Concomitant]
  3. IBUPROFEN [Concomitant]

REACTIONS (4)
  - APHAGIA [None]
  - DIZZINESS [None]
  - GUILLAIN-BARRE SYNDROME [None]
  - PAIN [None]
